FAERS Safety Report 18610443 (Version 2)
Quarter: 2020Q4

REPORT INFORMATION
  Report Type: Report from Study
  Country: CN (occurrence: CN)
  Receive Date: 20201214
  Receipt Date: 20201223
  Transmission Date: 20210114
  Serious: Yes (Hospitalization)
  Sender: FDA-Public Use
  Company Number: CN-ROCHE-2618345

PATIENT
  Age: 75 Year
  Sex: Male
  Weight: 55 kg

DRUGS (7)
  1. BUPRENORPHINE. [Concomitant]
     Active Substance: BUPRENORPHINE
     Indication: ARTHRALGIA
     Route: 062
     Dates: start: 20200514, end: 20200528
  2. CALCITRIOL. [Concomitant]
     Active Substance: CALCITRIOL
     Indication: INTERVERTEBRAL DISC PROTRUSION
     Dates: start: 20191102
  3. CALCIUM CARBONATE. [Concomitant]
     Active Substance: CALCIUM CARBONATE
     Indication: PROPHYLAXIS
     Route: 048
     Dates: start: 20191103
  4. REBAMIPIDE [Concomitant]
     Active Substance: REBAMIPIDE
     Route: 042
     Dates: start: 20191103
  5. TIZANIDINE HYDROCHLORIDE. [Concomitant]
     Active Substance: TIZANIDINE HYDROCHLORIDE
     Indication: ANALGESIC THERAPY
     Route: 048
     Dates: start: 20191114
  6. IMRECOXIB. [Concomitant]
     Active Substance: IMRECOXIB
     Route: 048
     Dates: start: 20191111
  7. ATEZOLIZUMAB. [Suspect]
     Active Substance: ATEZOLIZUMAB
     Indication: NON-SMALL CELL LUNG CANCER
     Dosage: MOST RECENT DOSE OF ATEZOLIZUMAB PRIOR TO ADVERSE EVENT WAS ON 11/MAY/2020?MOST RECENT DOSE OF ATEZO
     Route: 041
     Dates: start: 20190626

REACTIONS (1)
  - Osteoarthritis [Recovered/Resolved]

NARRATIVE: CASE EVENT DATE: 20200514
